FAERS Safety Report 13410456 (Version 3)
Quarter: 2019Q3

REPORT INFORMATION
  Report Type: Spontaneous
  Country: US (occurrence: US)
  Receive Date: 20170406
  Receipt Date: 20190819
  Transmission Date: 20191004
  Serious: No
  Sender: FDA-Public Use
  Company Number: US-JNJFOC-20170226447

PATIENT
  Age: 9 Year
  Sex: Male

DRUGS (7)
  1. RISPERDAL [Suspect]
     Active Substance: RISPERIDONE
     Indication: MACROCEPHALY
     Route: 048
     Dates: start: 20040930, end: 20071203
  2. RISPERDAL [Suspect]
     Active Substance: RISPERIDONE
     Indication: ATTENTION DEFICIT/HYPERACTIVITY DISORDER
     Route: 048
     Dates: start: 20071203, end: 20080829
  3. RISPERDAL [Suspect]
     Active Substance: RISPERIDONE
     Dosage: 1/2 IN MORNING , 1 IN NIGHT
     Route: 048
     Dates: start: 2007, end: 20071203
  4. RISPERDAL [Suspect]
     Active Substance: RISPERIDONE
     Indication: MACROCEPHALY
     Dosage: 1/2 IN MORNING , 1 IN NIGHT
     Route: 048
     Dates: start: 20060125, end: 20061102
  5. RISPERDAL [Suspect]
     Active Substance: RISPERIDONE
     Indication: MACROCEPHALY
     Dosage: 1/2 IN MORNING , 1 IN NIGHT
     Route: 048
     Dates: start: 20070327, end: 200711
  6. RISPERDAL [Suspect]
     Active Substance: RISPERIDONE
     Indication: ATTENTION DEFICIT/HYPERACTIVITY DISORDER
     Dosage: 1/2 IN MORNING , 1 IN NIGHT
     Route: 048
     Dates: start: 20040930, end: 20050831
  7. RISPERDAL [Suspect]
     Active Substance: RISPERIDONE
     Indication: AUTISM SPECTRUM DISORDER

REACTIONS (5)
  - Product use in unapproved indication [Unknown]
  - Gynaecomastia [Unknown]
  - Therapy cessation [Unknown]
  - Emotional distress [Unknown]
  - Off label use [Unknown]

NARRATIVE: CASE EVENT DATE: 20040930
